FAERS Safety Report 23788717 (Version 1)
Quarter: 2024Q2

REPORT INFORMATION
  Report Type: Spontaneous
  Country: CZ (occurrence: CZ)
  Receive Date: 20240426
  Receipt Date: 20240426
  Transmission Date: 20240717
  Serious: Yes (Other)
  Sender: FDA-Public Use
  Company Number: CZ-BRISTOL-MYERS SQUIBB COMPANY-2024-058487

PATIENT
  Age: 48 Year
  Sex: Male
  Weight: 142 kg

DRUGS (7)
  1. FLUOROURACIL\LEUCOVORIN [Suspect]
     Active Substance: FLUOROURACIL\LEUCOVORIN
     Indication: Gastric cancer
     Dosage: FUFA (FOLINIC ACID)?FORM OF ADMIN: UNKNOWN?ROUTE OF ADMIN: UNK
  2. FLUOROURACIL\LEUCOVORIN [Suspect]
     Active Substance: FLUOROURACIL\LEUCOVORIN
     Dosage: FOLFOX 6 (FOLINIC ACID)?FORM OF ADMIN: UNKNOWN?ROUTE OF ADMIN: UNK
     Dates: start: 202212
  3. FLUOROURACIL\LEUCOVORIN CALCIUM\OXALIPLATIN [Suspect]
     Active Substance: FLUOROURACIL\LEUCOVORIN CALCIUM\OXALIPLATIN
     Indication: Gastric cancer
     Dosage: FOLFOX 6 (OXALIPLATIN)?FORM OF ADMIN: UNKNOWN?ROUTE OF ADMIN: UNK
     Dates: start: 202212
  4. OPDIVO [Suspect]
     Active Substance: NIVOLUMAB
     Indication: Gastric cancer
     Dates: start: 202212, end: 202309
  5. FLUOROURACIL\LEUCOVORIN [Suspect]
     Active Substance: FLUOROURACIL\LEUCOVORIN
     Indication: Gastric cancer
     Dosage: FOLFOX 6 (FLUOROURACIL)
     Dates: start: 202212
  6. FLUOROURACIL\LEUCOVORIN [Suspect]
     Active Substance: FLUOROURACIL\LEUCOVORIN
     Dosage: FUFA (FLUOROURACIL)
  7. FLUOROURACIL\IRINOTECAN\LEUCOVORIN [Concomitant]
     Active Substance: FLUOROURACIL\IRINOTECAN\LEUCOVORIN
     Indication: Gastric cancer
     Dates: start: 202309

REACTIONS (2)
  - Malignant neoplasm progression [Recovering/Resolving]
  - Neuropathy peripheral [Recovering/Resolving]

NARRATIVE: CASE EVENT DATE: 20230101
